FAERS Safety Report 6398784-9 (Version None)
Quarter: 2009Q4

REPORT INFORMATION
  Report Type: 
  Country: None (occurrence: None)
  Receive Date: 20091013
  Receipt Date: 20091001
  Transmission Date: 20100525
  Serious: Yes (Other)
  Sender: FDA-Public Use
  Company Number: US-ELI_LILLY_AND_COMPANY-US200910000509

PATIENT
  Age: 48 Year
  Sex: Female

DRUGS (5)
  1. CYMBALTA [Suspect]
     Indication: DEPRESSION
     Dosage: 90 MG, DAILY (1/D)
     Dates: start: 20060101, end: 20090301
  2. CYMBALTA [Suspect]
     Dosage: 180 MG, DAILY (1/D)
     Dates: start: 20090301
  3. TRAZODONE [Concomitant]
     Dosage: 100 MG, EACH EVENING
  4. CLONAZEPAN [Concomitant]
     Dosage: 2 MG, AS NEEDED
  5. WELLBUTRIN XL [Concomitant]
     Dosage: 150 MG, 2/D

REACTIONS (4)
  - ACCIDENTAL OVERDOSE [None]
  - FALL [None]
  - INTESTINAL OBSTRUCTION [None]
  - MEDICATION ERROR [None]
